FAERS Safety Report 5329230-1 (Version None)
Quarter: 2007Q2

REPORT INFORMATION
  Report Type: 
  Country: None (occurrence: None)
  Receive Date: 20070518
  Receipt Date: 20070508
  Transmission Date: 20071010
  Serious: Yes (Other)
  Sender: FDA-Public Use
  Company Number: CN-PFIZER INC-2007037072

PATIENT
  Age: 75 Year
  Sex: Male

DRUGS (2)
  1. NORVASC [Suspect]
     Indication: HYPERTENSION
     Route: 048
  2. BENAZEPRIL HYDROCHLORIDE [Concomitant]
     Dosage: TEXT:1 DF-FREQ:DAILY
     Route: 048

REACTIONS (2)
  - AORTIC ANEURYSM [None]
  - BLOOD PRESSURE INADEQUATELY CONTROLLED [None]
